FAERS Safety Report 17761627 (Version 1)
Quarter: 2020Q2

REPORT INFORMATION
  Report Type: Spontaneous
  Country: ES (occurrence: ES)
  Receive Date: 20200508
  Receipt Date: 20200508
  Transmission Date: 20200714
  Serious: Yes (Hospitalization)
  Sender: FDA-Public Use
  Company Number: ES-CADILA HEALTHCARE LIMITED-ES-ZYDUS-027442

PATIENT

DRUGS (4)
  1. CODIOVAN [Suspect]
     Active Substance: HYDROCHLOROTHIAZIDE\VALSARTAN
     Indication: PRODUCT USED FOR UNKNOWN INDICATION
     Dosage: 1 DOSAGE FORM,1-0-0,(INTERVAL :24 HOURS)
     Route: 048
  2. LERCANIDIPINE [Suspect]
     Active Substance: LERCANIDIPINE
     Indication: HYPERTENSION
     Dosage: 10 MILLIGRAM,1-0-0,(INTERVAL :24 HOURS)
     Route: 048
  3. PARACETAMOL [Suspect]
     Active Substance: ACETAMINOPHEN
     Indication: PAIN
     Dosage: 1 GRAM,1GR C/8H,(INTERVAL :8 HOURS)
     Route: 048
  4. SIMVASTATIN. [Suspect]
     Active Substance: SIMVASTATIN
     Indication: DYSLIPIDAEMIA
     Dosage: 10 MILLIGRAM,0-0-1,(INTERVAL :24 HOURS)
     Route: 048

REACTIONS (2)
  - Hepatitis [Recovered/Resolved]
  - Hyperbilirubinaemia [Recovered/Resolved]
